FAERS Safety Report 9170634 (Version 1)
Quarter: 2013Q1

REPORT INFORMATION
  Report Type: Spontaneous
  Country: US (occurrence: None)
  Receive Date: 20130311
  Receipt Date: 20130311
  Transmission Date: 20140127
  Serious: Yes (Other)
  Sender: FDA-Public Use
  Company Number: 2013AP003380

PATIENT
  Sex: Female

DRUGS (1)
  1. OXCARBAZEPIN (OXACARBAZEPINE) [Suspect]
     Indication: BENIGN ROLANDIC EPILEPSY

REACTIONS (1)
  - Petit mal epilepsy [None]
